FAERS Safety Report 5427657-0 (Version None)
Quarter: 2007Q3

REPORT INFORMATION
  Report Type: 
  Country: None (occurrence: None)
  Receive Date: 20070828
  Receipt Date: 20070817
  Transmission Date: 20080115
  Serious: Yes (Hospitalization)
  Sender: FDA-Public Use
  Company Number: US-BRISTOL-MYERS SQUIBB COMPANY-13873120

PATIENT
  Age: 77 Year
  Sex: Male

DRUGS (13)
  1. BLINDED: APIXABAN [Suspect]
     Indication: ACUTE CORONARY SYNDROME
     Route: 048
     Dates: start: 20070801, end: 20070802
  2. BLINDED: PLACEBO [Suspect]
     Indication: ACUTE CORONARY SYNDROME
     Route: 048
     Dates: start: 20070801, end: 20070802
  3. ACETYLCYSTEINE [Concomitant]
     Dates: start: 20070730, end: 20070801
  4. FUROSEMIDE [Concomitant]
     Dates: start: 19910101
  5. OMEPRAZOLE [Concomitant]
     Dates: start: 20010101, end: 20070807
  6. ALLOPURINOL [Concomitant]
     Dates: start: 19960101
  7. AMLODIPINE [Concomitant]
     Dates: start: 20020101
  8. SIMVASTATIN [Concomitant]
     Dates: start: 20070730, end: 20070806
  9. CARVEDILOL [Concomitant]
     Dates: start: 20020101
  10. CANDESARTAN CILEXETIL [Concomitant]
     Dates: start: 20020101
  11. DOXAZOSIN MESYLATE [Concomitant]
     Dates: start: 20020101
  12. DORMICUM [Concomitant]
     Indication: PREMEDICATION
  13. FENTANYL [Concomitant]
     Indication: PREMEDICATION

REACTIONS (1)
  - COLON NEOPLASM [None]
